FAERS Safety Report 7086463-4 (Version None)
Quarter: 2010Q4

REPORT INFORMATION
  Report Type: 
  Country: None (occurrence: None)
  Receive Date: 20101105
  Receipt Date: 20101029
  Transmission Date: 20110411
  Serious: Yes (Hospitalization)
  Sender: FDA-Public Use
  Company Number: US-B.I. PHARMACEUTICALS,INC./RIDGEFIELD-2010-BP-12153BP

PATIENT
  Sex: Male

DRUGS (3)
  1. FLOMAX [Suspect]
  2. ZESTRIL [Suspect]
  3. LITHIUM [Suspect]

REACTIONS (6)
  - ADVERSE DRUG REACTION [None]
  - DIPLOPIA [None]
  - FATIGUE [None]
  - GAIT DISTURBANCE [None]
  - HYPOTENSION [None]
  - MULTIPLE SCLEROSIS [None]
